FAERS Safety Report 20339575 (Version 3)
Quarter: 2022Q4

REPORT INFORMATION
  Report Type: Spontaneous
  Country: US (occurrence: US)
  Receive Date: 20220117
  Receipt Date: 20221111
  Transmission Date: 20230113
  Serious: Yes (Other)
  Sender: FDA-Public Use
  Company Number: US-GILEAD-2022-0564661

PATIENT
  Age: 38 Year
  Sex: Male

DRUGS (4)
  1. ATRIPLA [Suspect]
     Active Substance: EFAVIRENZ\EMTRICITABINE\TENOFOVIR DISOPROXIL FUMARATE
     Indication: HIV infection
     Dosage: UNK
     Route: 048
     Dates: start: 20080101, end: 20191231
  2. ATRIPLA [Suspect]
     Active Substance: EFAVIRENZ\EMTRICITABINE\TENOFOVIR DISOPROXIL FUMARATE
     Dosage: UNK
     Route: 048
     Dates: start: 200704, end: 201902
  3. BIKTARVY [Concomitant]
     Active Substance: BICTEGRAVIR SODIUM\EMTRICITABINE\TENOFOVIR ALAFENAMIDE FUMARATE
  4. DESCOVY [Concomitant]
     Active Substance: EMTRICITABINE\TENOFOVIR ALAFENAMIDE FUMARATE

REACTIONS (7)
  - Multiple fractures [Unknown]
  - Bone density decreased [Unknown]
  - Tooth loss [Not Recovered/Not Resolved]
  - Tooth fracture [Not Recovered/Not Resolved]
  - Osteopenia [Not Recovered/Not Resolved]
  - Rib fracture [Recovered/Resolved]
  - Wrist fracture [Recovered/Resolved]

NARRATIVE: CASE EVENT DATE: 20080704
